FAERS Safety Report 5474048-2 (Version None)
Quarter: 2007Q4

REPORT INFORMATION
  Report Type: 
  Country: None (occurrence: None)
  Receive Date: 20071002
  Receipt Date: 20070921
  Transmission Date: 20080405
  Serious: Yes (Other)
  Sender: FDA-Public Use
  Company Number: PHFR2007GB02801

PATIENT
  Sex: Female

DRUGS (1)
  1. VOLTAREN [Suspect]
     Route: 065

REACTIONS (2)
  - GENERAL PHYSICAL CONDITION ABNORMAL [None]
  - TYPE 2 DIABETES MELLITUS [None]
